FAERS Safety Report 10542938 (Version 1)
Quarter: 2014Q4

REPORT INFORMATION
  Report Type: Spontaneous
  Country: US (occurrence: None)
  Receive Date: 20141024
  Receipt Date: 20141024
  Transmission Date: 20150529
  Serious: Yes (Hospitalization)
  Sender: FDA-Public Use
  Company Number: None

PATIENT
  Age: 64 Year
  Sex: Female
  Weight: 65 kg

DRUGS (12)
  1. FLAX OIL [Concomitant]
  2. MULTIVITAMIN CAPSULES [Concomitant]
  3. ALIGN PROBIOTIC [Concomitant]
  4. FISH OIL [Concomitant]
     Active Substance: FISH OIL
  5. LORATADINE. [Concomitant]
     Active Substance: LORATADINE
  6. LAVANDER OIL CAPSULE [Concomitant]
  7. LISINOPRIL AND HYDROCHLOROTHIAZIDE [Concomitant]
     Active Substance: HYDROCHLOROTHIAZIDE\LISINOPRIL
  8. ZOLPIDEM [Concomitant]
     Active Substance: ZOLPIDEM\ZOLPIDEM TARTRATE
  9. BACTRIM DS [Suspect]
     Active Substance: SULFAMETHOXAZOLE\TRIMETHOPRIM
     Indication: LOCALISED INFECTION
     Dosage: 1 TABLET, BID, ORAL
     Route: 048
     Dates: start: 20141016, end: 20141020
  10. CALCIUM TABLETS [Concomitant]
  11. ALLER-C TABLETS [Concomitant]
  12. VITAMIN D [Concomitant]
     Active Substance: CHOLECALCIFEROL

REACTIONS (3)
  - Generalised tonic-clonic seizure [None]
  - Hyponatraemia [None]
  - Malaise [None]

NARRATIVE: CASE EVENT DATE: 20141021
